FAERS Safety Report 8831369 (Version 3)
Quarter: 2014Q4

REPORT INFORMATION
  Report Type: Report from Study
  Country: DE (occurrence: DE)
  Receive Date: 20121009
  Receipt Date: 20141024
  Transmission Date: 20150529
  Serious: Yes (Hospitalization, Other)
  Sender: FDA-Public Use
  Company Number: DE-MERCK-1203USA01551

PATIENT
  Age: 79 Year
  Sex: Male
  Weight: 88 kg

DRUGS (14)
  1. RAMIPRIL. [Concomitant]
     Active Substance: RAMIPRIL
     Dosage: TOTAL DAILY DOSE: 5 MG
     Route: 048
     Dates: start: 20030318
  2. METOPROLOL [Concomitant]
     Active Substance: METOPROLOL
     Dosage: TOTAL DAILY DOSE: 4.75 MG
     Route: 048
     Dates: start: 20030425
  3. VITAMIN D [Concomitant]
     Active Substance: CHOLECALCIFEROL
     Route: 048
     Dates: start: 20080314
  4. HYDROCHLOROTHIAZIDE. [Concomitant]
     Active Substance: HYDROCHLOROTHIAZIDE
     Dosage: 20 MG, QD
     Route: 048
     Dates: start: 20080314
  5. AMLODIPINE [Suspect]
     Active Substance: AMLODIPINE BESYLATE
     Dosage: TOTAL DAILY DOSE: 5 MG
     Route: 048
     Dates: start: 20080319, end: 20120313
  6. PREDNISOLONE. [Concomitant]
     Active Substance: PREDNISOLONE
     Dosage: TOTAL DAILY DOSE: 2 MG
     Route: 048
     Dates: start: 20030421
  7. SAXAGLIPTIN [Concomitant]
     Active Substance: SAXAGLIPTIN
     Dosage: TOTAL DAILY DOSE: 5 MG
     Route: 048
     Dates: start: 20120101
  8. URALYT [Concomitant]
     Active Substance: POTASSIUM CITRATE\TRISODIUM CITRATE DIHYDRATE
     Dosage: TOTAL DAILY DOSE: 2.5 MG
     Route: 048
     Dates: start: 20120309, end: 20120316
  9. SIMVASTATIN. [Suspect]
     Active Substance: SIMVASTATIN
     Indication: ACUTE CORONARY SYNDROME
     Dosage: UNK
     Route: 048
     Dates: start: 20080319, end: 20120308
  10. GLIMEPIRIDE. [Concomitant]
     Active Substance: GLIMEPIRIDE
     Dosage: TOTAL DAILY DOSE: 1 MG
     Route: 048
     Dates: start: 20030301
  11. ERGOCALCIFEROL. [Concomitant]
     Active Substance: ERGOCALCIFEROL
     Dosage: UNK
     Dates: start: 20080314
  12. ZOCOR [Suspect]
     Active Substance: SIMVASTATIN
     Dosage: TOTAL DAILY DOSE: 40 MG
     Route: 048
     Dates: start: 20100601, end: 20120307
  13. ASPIRIN. [Concomitant]
     Active Substance: ASPIRIN
     Dosage: TOTAL DAILY DOSE: 100 MG
     Route: 048
     Dates: start: 20030425
  14. CALCIUM (UNSPECIFIED) [Concomitant]
     Active Substance: CALCIUM
     Route: 048
     Dates: start: 20080314

REACTIONS (3)
  - Blood creatine phosphokinase increased [Recovered/Resolved]
  - Subclavian artery stenosis [Recovered/Resolved]
  - Renal cyst [Not Recovered/Not Resolved]

NARRATIVE: CASE EVENT DATE: 20120307
